FAERS Safety Report 4925450-6 (Version None)
Quarter: 2006Q1

REPORT INFORMATION
  Report Type: 
  Country: None (occurrence: None)
  Receive Date: 20060228
  Receipt Date: 20050223
  Transmission Date: 20060701
  Serious: No
  Sender: FDA-Public Use
  Company Number: US-GLAXOSMITHKLINE-A0546924A

PATIENT
  Sex: Female

DRUGS (5)
  1. LAMICTAL [Suspect]
     Indication: BIPOLAR DISORDER
     Dosage: 5MG PER DAY
     Route: 048
     Dates: start: 20050219
  2. DEPAKOTE [Concomitant]
  3. BENICAR [Concomitant]
  4. LIPITOR [Concomitant]
  5. LEXAPRO [Concomitant]

REACTIONS (1)
  - ALOPECIA [None]
